FAERS Safety Report 5630417-9 (Version None)
Quarter: 2008Q1

REPORT INFORMATION
  Report Type: 
  Country: None (occurrence: None)
  Receive Date: 20080219
  Receipt Date: 20080212
  Transmission Date: 20080703
  Serious: Yes (Hospitalization, Other)
  Sender: FDA-Public Use
  Company Number: FR-BRISTOL-MYERS SQUIBB COMPANY-14075170

PATIENT
  Age: 74 Year
  Sex: Female

DRUGS (17)
  1. AMIKLIN [Suspect]
     Route: 042
     Dates: start: 20071029, end: 20071031
  2. ROCEPHIN [Suspect]
     Dates: start: 20071025, end: 20071109
  3. CIFLOX [Suspect]
     Dates: start: 20071025, end: 20071029
  4. BACTRIM [Suspect]
     Indication: SEPSIS
     Dates: start: 20071031, end: 20071107
  5. TEMODAL [Suspect]
     Indication: GLIOBLASTOMA
     Dates: start: 20061001, end: 20071001
  6. TRIFLUCAN [Suspect]
     Indication: FUNGAL INFECTION
     Dates: start: 20071025, end: 20071107
  7. FLAGYL [Suspect]
     Indication: PROPHYLAXIS
     Dates: start: 20071026, end: 20071031
  8. BRISTOPEN [Concomitant]
     Indication: ERYSIPELAS
     Dates: start: 20071004, end: 20071024
  9. SOLU-MEDROL [Concomitant]
  10. NEURONTIN [Concomitant]
     Dosage: DAILY DOSE REDUCED TO 3X400MG FROM 07OCT07
     Dates: start: 20061101
  11. INSULIN [Concomitant]
     Dates: start: 20071025, end: 20071102
  12. LEVEMIR [Concomitant]
     Route: 058
     Dates: start: 20071103
  13. MOPRAL [Concomitant]
     Dates: start: 20071025
  14. INIPOMP [Concomitant]
     Dates: start: 20071025
  15. ACETAMINOPHEN [Concomitant]
     Dosage: 1 DOSAGE FORM=10, UNITS NOT SPECIFIED.
     Dates: start: 20071026
  16. DIFFU-K [Concomitant]
     Dates: start: 20071027, end: 20071028
  17. LOVENOX [Concomitant]
     Dates: start: 20071025, end: 20071026

REACTIONS (3)
  - CHOLESTASIS [None]
  - PANCREATIC CYST [None]
  - PLEURAL EFFUSION [None]
